FAERS Safety Report 8162361-X (Version None)
Quarter: 2012Q1

REPORT INFORMATION
  Report Type: 
  Country: None (occurrence: None)
  Receive Date: 20120224
  Receipt Date: 20120213
  Transmission Date: 20120608
  Serious: Yes (Hospitalization, Other)
  Sender: FDA-Public Use
  Company Number: US-ELI_LILLY_AND_COMPANY-US201112004818

PATIENT
  Sex: Female
  Weight: 71.202 kg

DRUGS (16)
  1. FORTEO [Suspect]
     Indication: OSTEOPOROSIS
     Dosage: 20 UG, QD
     Dates: start: 20110601, end: 20111201
  2. TRICOR [Concomitant]
  3. SPIRIVA [Concomitant]
  4. PLAVIX [Concomitant]
  5. NEXIUM [Concomitant]
  6. ALLEGRA [Concomitant]
  7. FORTEO [Suspect]
     Dosage: 20 UG, QD
     Dates: start: 20111201
  8. NORCO [Concomitant]
  9. VASOTEC [Concomitant]
  10. TOPROL-XL [Concomitant]
  11. NORVASC [Concomitant]
  12. COUMADIN [Concomitant]
     Indication: DEEP VEIN THROMBOSIS
  13. VYTORIN [Concomitant]
  14. PROAIR HFA [Concomitant]
  15. IMDUR [Concomitant]
  16. ROFLUMILAST [Concomitant]

REACTIONS (1)
  - DEEP VEIN THROMBOSIS [None]
